FAERS Safety Report 8536201-0 (Version None)
Quarter: 2012Q3

REPORT INFORMATION
  Report Type: 
  Country: None (occurrence: None)
  Receive Date: 20120725
  Receipt Date: 20120716
  Transmission Date: 20120928
  Serious: Yes (Other)
  Sender: FDA-Public Use
  Company Number: US-JNJFOC-20120708720

PATIENT
  Sex: Female

DRUGS (1)
  1. XARELTO [Suspect]
     Indication: ATRIAL FIBRILLATION
     Route: 048
     Dates: start: 20120709

REACTIONS (14)
  - ARTHRALGIA [None]
  - FLANK PAIN [None]
  - WEIGHT FLUCTUATION [None]
  - PAIN [None]
  - ABDOMINAL RIGIDITY [None]
  - PAIN IN EXTREMITY [None]
  - OXYGEN SUPPLEMENTATION [None]
  - ADVERSE EVENT [None]
  - RASH [None]
  - MUSCLE TIGHTNESS [None]
  - INSOMNIA [None]
  - DIZZINESS [None]
  - NAUSEA [None]
  - FEELING ABNORMAL [None]
